FAERS Safety Report 7314911-0 (Version None)
Quarter: 2011Q1

REPORT INFORMATION
  Report Type: 
  Country: None (occurrence: None)
  Receive Date: 20110225
  Receipt Date: 20100126
  Transmission Date: 20110831
  Serious: No
  Sender: FDA-Public Use
  Company Number: US-MYLANLABS-2010S1001442

PATIENT
  Age: 32 Year
  Sex: Female

DRUGS (7)
  1. TOPAMAX [Concomitant]
     Dates: start: 20091101
  2. AMNESTEEM [Suspect]
     Route: 048
     Dates: start: 20090914, end: 20100101
  3. MIRENA [Concomitant]
  4. RITALIN [Concomitant]
  5. CELEXA [Concomitant]
  6. AMNESTEEM [Suspect]
     Indication: ACNE
     Route: 048
     Dates: start: 20090914, end: 20100101
  7. BENTYL [Concomitant]

REACTIONS (2)
  - ARTHRALGIA [None]
  - EPISTAXIS [None]
